FAERS Safety Report 8200946-2 (Version None)
Quarter: 2012Q1

REPORT INFORMATION
  Report Type: 
  Country: None (occurrence: None)
  Receive Date: 20120312
  Receipt Date: 20111021
  Transmission Date: 20120608
  Serious: No
  Sender: FDA-Public Use
  Company Number: US-ABBOTT-11P-163-0865955-00

PATIENT
  Sex: Female
  Weight: 68.1 kg

DRUGS (1)
  1. LUPRON DEPOT [Suspect]
     Indication: ENDOMETRIOSIS
     Route: 030
     Dates: start: 20110506

REACTIONS (7)
  - DRUG INEFFECTIVE [None]
  - RHINORRHOEA [None]
  - SNEEZING [None]
  - SINUS CONGESTION [None]
  - HOT FLUSH [None]
  - BREAKTHROUGH PAIN [None]
  - SINUSITIS [None]
